FAERS Safety Report 18841143 (Version 1)
Quarter: 2021Q1

REPORT INFORMATION
  Report Type: Spontaneous
  Country: JP (occurrence: JP)
  Receive Date: 20210203
  Receipt Date: 20210203
  Transmission Date: 20210419
  Serious: Yes (Other)
  Sender: FDA-Public Use
  Company Number: JP-ANIPHARMA-2021-JP-000036

PATIENT
  Sex: Male

DRUGS (5)
  1. PROSEXOL [Suspect]
     Active Substance: ETHINYL ESTRADIOL
     Dosage: UNKNOWN DOSE AND FREQUENCY
     Route: 065
  2. XTANDI [Suspect]
     Active Substance: ENZALUTAMIDE
     Dosage: UNKNOWN DOSE AND FREQUENCY
     Route: 065
  3. ODYNE [Suspect]
     Active Substance: FLUTAMIDE
     Dosage: UNKNOWN DOSE AND FREQUENCY
  4. GONAX [Suspect]
     Active Substance: DEGARELIX
  5. CASODEX [Suspect]
     Active Substance: BICALUTAMIDE
     Indication: PROSTATE CANCER
     Dosage: 80 MG QD
     Route: 048

REACTIONS (4)
  - Metastases to bone [Unknown]
  - Rash [Unknown]
  - Off label use [Unknown]
  - Malignant neoplasm progression [Unknown]
